FAERS Safety Report 4816052-0 (Version None)
Quarter: 2005Q4

REPORT INFORMATION
  Report Type: 
  Country: None (occurrence: None)
  Receive Date: 20051026
  Receipt Date: 20051006
  Transmission Date: 20060501
  Serious: Yes (Other)
  Sender: FDA-Public Use
  Company Number: US_0508120672

PATIENT
  Age: 75 Year

DRUGS (2)
  1. FORTEO [Suspect]
  2. CALCIUM GLUCONATE [Concomitant]

REACTIONS (3)
  - CONDITION AGGRAVATED [None]
  - DRUG PRESCRIBING ERROR [None]
  - HYPERCALCAEMIA [None]
